FAERS Safety Report 24743868 (Version 8)
Quarter: 2025Q4

REPORT INFORMATION
  Report Type: Spontaneous
  Country: US (occurrence: US)
  Receive Date: 20241217
  Receipt Date: 20251105
  Transmission Date: 20260118
  Serious: No
  Sender: PFIZER
  Company Number: US-PFIZER INC-202101146118

PATIENT
  Age: 86 Year
  Sex: Female
  Weight: 55.79 kg

DRUGS (2)
  1. PREMARIN [Suspect]
     Active Substance: ESTROGENS, CONJUGATED
     Indication: Osteoporosis
     Dosage: 1 DF, 1X/DAY
     Route: 048
  2. PREMARIN [Suspect]
     Active Substance: ESTROGENS, CONJUGATED
     Indication: Menopause
     Dosage: 0.625 MG, ALTERNATE DAY
     Route: 048
     Dates: start: 1988

REACTIONS (2)
  - Meniscus injury [Unknown]
  - Product prescribing error [Unknown]
